FAERS Safety Report 9351115 (Version 1)
Quarter: 2013Q2

REPORT INFORMATION
  Report Type: Spontaneous
  Country: US (occurrence: US)
  Receive Date: 20130617
  Receipt Date: 20130617
  Transmission Date: 20140414
  Serious: No
  Sender: FDA-Public Use
  Company Number: US-BAYER-2013-071294

PATIENT
  Age: 54 Year
  Sex: Male
  Weight: 98.41 kg

DRUGS (8)
  1. BETASERON [Suspect]
     Indication: RELAPSING-REMITTING MULTIPLE SCLEROSIS
     Dosage: 0.25 MG, QOD
     Route: 058
  2. SIMVASTATIN [Concomitant]
     Dosage: 40 MG, UNK
  3. LANSOPRAZOLE [Concomitant]
     Dosage: 3 MG/ML, UNK
  4. HYDROCHLOROTHIAZID [Concomitant]
     Dosage: 50 MG, UNK
  5. CITALOPRAM [Concomitant]
     Dosage: 20 MG, UNK
  6. VITAMIN D [Concomitant]
     Dosage: 2000, UNIT,UNK
  7. EXFORGE [Concomitant]
     Dosage: 5-160 MG
  8. BLOOD PRESSURE MEDICATION (NOS) [Concomitant]

REACTIONS (4)
  - Fatigue [Unknown]
  - Constipation [Unknown]
  - Insomnia [Unknown]
  - Joint instability [Unknown]
